FAERS Safety Report 9673071 (Version 1)
Quarter: 2013Q4

REPORT INFORMATION
  Report Type: Spontaneous
  Country: US (occurrence: US)
  Receive Date: 20131106
  Receipt Date: 20131106
  Transmission Date: 20140711
  Serious: Yes (Other)
  Sender: FDA-Public Use
  Company Number: US-AMGEN-USASP2013069720

PATIENT
  Age: 67 Year
  Sex: Female

DRUGS (2)
  1. ENBREL [Suspect]
     Indication: RHEUMATOID ARTHRITIS
     Dosage: 50 MG, QWK
     Route: 065
     Dates: start: 200607
  2. METHOTREXATE [Concomitant]
     Dosage: 2.5 MG TABLETS TAKES 6 WEEKLY

REACTIONS (2)
  - Atypical pneumonia [Recovered/Resolved]
  - Arthritis [Not Recovered/Not Resolved]
